APPROVED DRUG PRODUCT: PENTACARINAT
Active Ingredient: PENTAMIDINE ISETHIONATE
Strength: 300MG/VIAL
Dosage Form/Route: INJECTABLE;INJECTION
Application: A073447 | Product #001
Applicant: ARMOUR PHARMACEUTICAL CO
Approved: Apr 28, 1994 | RLD: No | RS: No | Type: DISCN